FAERS Safety Report 12001482 (Version 2)
Quarter: 2016Q1

REPORT INFORMATION
  Report Type: Spontaneous
  Country: US (occurrence: US)
  Receive Date: 20160204
  Receipt Date: 20160217
  Transmission Date: 20160526
  Serious: No
  Sender: FDA-Public Use
  Company Number: US-ACTELION PHARMACEUTICALS US, INC.-A-NJ2016-130054

PATIENT
  Age: 75 Year
  Sex: Female

DRUGS (2)
  1. SILDENAFIL. [Concomitant]
     Active Substance: SILDENAFIL
  2. OPSUMIT [Suspect]
     Active Substance: MACITENTAN
     Indication: PULMONARY ARTERIAL HYPERTENSION
     Dosage: 10 MG, QD
     Route: 048
     Dates: start: 20160111

REACTIONS (14)
  - Hypersomnia [Unknown]
  - Oropharyngeal pain [Unknown]
  - Nasal congestion [Unknown]
  - Lethargy [Unknown]
  - Influenza like illness [Unknown]
  - Balance disorder [Unknown]
  - Tenderness [Unknown]
  - Malaise [Unknown]
  - Oedema peripheral [Unknown]
  - Sinus congestion [Unknown]
  - Urinary tract infection [Unknown]
  - Productive cough [Unknown]
  - Dizziness [Unknown]
  - Nasopharyngitis [Unknown]
